FAERS Safety Report 17076966 (Version 1)
Quarter: 2019Q4

REPORT INFORMATION
  Report Type: Spontaneous
  Country: US (occurrence: US)
  Receive Date: 20191029
  Receipt Date: 20191029
  Transmission Date: 20200122
  Serious: No
  Sender: FDA-Public Use
  Company Number: None

PATIENT

DRUGS (2)
  1. CLONIDINE. [Suspect]
     Active Substance: CLONIDINE
     Route: 048
  2. CLONIDINE. [Suspect]
     Active Substance: CLONIDINE
     Route: 048

REACTIONS (2)
  - Product distribution issue [None]
  - Product dose omission [None]
